FAERS Safety Report 11705269 (Version 3)
Quarter: 2016Q1

REPORT INFORMATION
  Report Type: Report from Study
  Country: JP (occurrence: JP)
  Receive Date: 20151106
  Receipt Date: 20160201
  Transmission Date: 20160525
  Serious: No
  Sender: FDA-Public Use
  Company Number: JP-DSJP-DSJ-2015-134598

PATIENT
  Sex: Female
  Weight: 51 kg

DRUGS (15)
  1. NEXIUM [Concomitant]
     Active Substance: ESOMEPRAZOLE MAGNESIUM
     Dosage: 20MG/DAY
     Route: 048
     Dates: end: 20150508
  2. BONALON [Concomitant]
     Active Substance: ALENDRONATE SODIUM
     Dosage: 5MG/DAY
     Route: 048
     Dates: start: 20150610
  3. DECADRON [Concomitant]
     Active Substance: DEXAMETHASONE
     Dosage: 2-1-0.5MG/DAY
     Route: 048
     Dates: start: 20150602, end: 20150622
  4. EXCEGRAN [Concomitant]
     Active Substance: ZONISAMIDE
     Dosage: 200MG/DAY
     Route: 048
     Dates: end: 20150508
  5. URSO [Concomitant]
     Active Substance: URSODIOL
     Dosage: 300MG/DAY
     Route: 048
     Dates: start: 20150516, end: 20150618
  6. MAGLAX [Concomitant]
     Active Substance: MAGNESIUM OXIDE
     Dosage: 990MG/DAY
     Route: 048
     Dates: end: 20150928
  7. TAKEPRON [Concomitant]
     Active Substance: LANSOPRAZOLE
     Dosage: 15, 30MG/DAY
     Route: 048
     Dates: start: 20150508, end: 20150713
  8. DECADRON [Concomitant]
     Active Substance: DEXAMETHASONE
     Dosage: 8-6-4MG/DAY
     Route: 042
     Dates: start: 20150417, end: 20150601
  9. CEFAZOLIN NA [Concomitant]
     Dosage: 2.0G/DAY
     Route: 042
     Dates: start: 20150512, end: 20150515
  10. EDOXABAN [Suspect]
     Active Substance: EDOXABAN TOSYLATE
     Indication: DEEP VEIN THROMBOSIS
     Dosage: 30 MG, QD
     Route: 048
     Dates: start: 20150514, end: 20150523
  11. GLYCEREB [Concomitant]
     Dosage: 400ML/DAY
     Route: 042
     Dates: start: 20150417, end: 20150608
  12. FORTEO [Concomitant]
     Active Substance: TERIPARATIDE
     Dosage: 20UG/DAY
     Route: 058
  13. PURSENNID                          /00142207/ [Concomitant]
     Active Substance: SENNOSIDES A AND B
     Dosage: 2DF/DAY
     Route: 048
  14. PREDONINE [Concomitant]
     Active Substance: PREDNISOLONE\PREDNISOLONE ACETATE\PREDNISOLONE SODIUM SUCCINATE
     Dosage: 2.5MG/DAY
     Route: 048
     Dates: start: 20150621, end: 20150713
  15. NEO-MINOPHAGEN C [Concomitant]
     Active Substance: AMMONIUM GLYCYRRHIZATE
     Dosage: 40ML/DAY
     Route: 042
     Dates: start: 20150519, end: 20150601

REACTIONS (1)
  - Intracranial tumour haemorrhage [Recovered/Resolved]

NARRATIVE: CASE EVENT DATE: 20150522
